FAERS Safety Report 25069713 (Version 1)
Quarter: 2025Q1

REPORT INFORMATION
  Report Type: Spontaneous
  Country: US (occurrence: None)
  Receive Date: 20250312
  Receipt Date: 20250312
  Transmission Date: 20250408
  Serious: Yes (Other)
  Sender: FDA-CTU
  Company Number: None

PATIENT
  Age: 8 Year
  Sex: Male
  Weight: 35 kg

DRUGS (1)
  1. METOCLOPRAMIDE [Suspect]
     Active Substance: METOCLOPRAMIDE
     Indication: Headache
     Route: 042
     Dates: start: 20250309, end: 20250309

REACTIONS (5)
  - Infusion related reaction [None]
  - Screaming [None]
  - Muscle spasms [None]
  - Restless legs syndrome [None]
  - Dystonia [None]

NARRATIVE: CASE EVENT DATE: 20250309
